FAERS Safety Report 5123061-3 (Version None)
Quarter: 2006Q4

REPORT INFORMATION
  Report Type: 
  Country: None (occurrence: None)
  Receive Date: 20061004
  Receipt Date: 20061004
  Transmission Date: 20070319
  Serious: Yes (Death)
  Sender: FDA-Public Use
  Company Number: None

PATIENT
  Sex: Male
  Weight: 88.4514 kg

DRUGS (4)
  1. ZOCOR [Suspect]
     Indication: HYPERCHOLESTEROLAEMIA
     Dosage: 40 MG QD PO
     Route: 048
     Dates: start: 20051110, end: 20060701
  2. AVAPRO [Suspect]
     Indication: HYPERTENSION
     Dosage: 300 MG QD PO
     Route: 048
     Dates: start: 20031113, end: 20060701
  3. DETROL LA (TOLTERODINE TARTRATE) [Concomitant]
  4. ASPIRIN [Concomitant]

REACTIONS (5)
  - BRAIN HERNIATION [None]
  - CEREBELLAR HAEMORRHAGE [None]
  - INTRAVENTRICULAR HAEMORRHAGE [None]
  - RESPIRATORY ARREST [None]
  - SUBARACHNOID HAEMORRHAGE [None]
